FAERS Safety Report 18555600 (Version 12)
Quarter: 2024Q4

REPORT INFORMATION
  Report Type: Report from Study
  Country: US (occurrence: US)
  Receive Date: 20201127
  Receipt Date: 20241122
  Transmission Date: 20250115
  Serious: Yes (Hospitalization, Other)
  Sender: TAKEDA
  Company Number: US-SHIRE-US202021918

PATIENT
  Sex: Female

DRUGS (3)
  1. HUMAN IMMUNOGLOBULIN G\HYALURONIDASE RECOMBINANT HUMAN [Suspect]
     Active Substance: HUMAN IMMUNOGLOBULIN G\HYALURONIDASE (HUMAN RECOMBINANT)
     Indication: Immunodeficiency common variable
     Dosage: UNK
  2. HUMAN IMMUNOGLOBULIN G\HYALURONIDASE RECOMBINANT HUMAN [Suspect]
     Active Substance: HUMAN IMMUNOGLOBULIN G\HYALURONIDASE (HUMAN RECOMBINANT)
     Indication: Primary immunodeficiency syndrome
  3. HUMAN IMMUNOGLOBULIN G [Suspect]
     Active Substance: HUMAN IMMUNOGLOBULIN G
     Indication: Immunodeficiency common variable
     Dosage: UNK

REACTIONS (21)
  - Diabetes mellitus [Unknown]
  - Arthropathy [Unknown]
  - Dysphonia [Unknown]
  - Infection [Unknown]
  - Macular degeneration [Unknown]
  - Atrial fibrillation [Unknown]
  - Loss of consciousness [Unknown]
  - Eye haemorrhage [Unknown]
  - Eye disorder [Unknown]
  - Visual impairment [Unknown]
  - Nerve compression [Unknown]
  - Arthritis [Unknown]
  - Head injury [Unknown]
  - Fall [Unknown]
  - Contusion [Unknown]
  - Tooth fracture [Unknown]
  - Post procedural complication [Unknown]
  - Restless legs syndrome [Unknown]
  - Hypotension [Unknown]
  - Malaise [Unknown]
  - Fatigue [Unknown]
